FAERS Safety Report 9587070 (Version 2)
Quarter: 2013Q4

REPORT INFORMATION
  Report Type: Spontaneous
  Country: US (occurrence: US)
  Receive Date: 20131003
  Receipt Date: 20131114
  Transmission Date: 20140711
  Serious: Yes (Other)
  Sender: FDA-Public Use
  Company Number: US-PFIZER INC-2013283430

PATIENT
  Age: 61 Year
  Sex: Female
  Weight: 88.4 kg

DRUGS (8)
  1. CHANTIX [Suspect]
     Indication: SMOKING CESSATION THERAPY
     Dosage: UNK
  2. CHANTIX [Suspect]
     Dosage: 0.5 MG, DAILY
     Dates: start: 2013, end: 201309
  3. CHANTIX [Suspect]
     Dosage: 1 MG, 2X/DAY
     Dates: start: 201309
  4. METFORMIN [Concomitant]
     Indication: DIABETES MELLITUS
     Dosage: 500 MG, DAILY
  5. EXFORGE [Concomitant]
     Indication: HYPERTENSION
     Dosage: 5 MG, DAILY
  6. TRILIPIX [Concomitant]
     Indication: BLOOD CHOLESTEROL INCREASED
     Dosage: 135 MG, DAILY
  7. ARICEPT [Concomitant]
     Indication: DEPRESSION
     Dosage: 10 MG, DAILY
  8. CITALOPRAM [Concomitant]
     Indication: DEMENTIA
     Dosage: 40 MG, DAILY

REACTIONS (2)
  - Rash [Not Recovered/Not Resolved]
  - Abnormal dreams [Unknown]
